FAERS Safety Report 8709354 (Version 3)
Quarter: 2013Q4

REPORT INFORMATION
  Report Type: Spontaneous
  Country: US (occurrence: US)
  Receive Date: 20120806
  Receipt Date: 20131031
  Transmission Date: 20140711
  Serious: No
  Sender: FDA-Public Use
  Company Number: US-009507513-2012SP024745

PATIENT
  Age: 65 Year
  Sex: Male

DRUGS (3)
  1. CLARITIN [Suspect]
     Indication: SEASONAL ALLERGY
     Dosage: 10 MG, ONCE
     Route: 048
     Dates: start: 20120502, end: 20120502
  2. CLARITIN [Suspect]
     Indication: HOUSE DUST ALLERGY
  3. CLARITIN [Suspect]
     Indication: NASAL CONGESTION

REACTIONS (1)
  - Abdominal distension [Recovered/Resolved]
